FAERS Safety Report 23368021 (Version 1)
Quarter: 2024Q1

REPORT INFORMATION
  Report Type: Spontaneous
  Country: FR (occurrence: FR)
  Receive Date: 20240105
  Receipt Date: 20240105
  Transmission Date: 20240410
  Serious: Yes (Other)
  Sender: FDA-Public Use
  Company Number: FR-SANDOZ-SDZ2024FR000195

PATIENT
  Sex: Female

DRUGS (1)
  1. ERELZI [Suspect]
     Active Substance: ETANERCEPT-SZZS
     Indication: Rheumatoid arthritis
     Dosage: 50 MG (ONE INJECTION PER WEEK)
     Route: 065

REACTIONS (4)
  - Angina pectoris [Unknown]
  - Influenza [Unknown]
  - Ear infection [Unknown]
  - Product storage error [Unknown]
